FAERS Safety Report 8301264-4 (Version None)
Quarter: 2012Q2

REPORT INFORMATION
  Report Type: 
  Country: None (occurrence: None)
  Receive Date: 20120420
  Receipt Date: 20120412
  Transmission Date: 20120825
  Serious: Yes (Other)
  Sender: FDA-Public Use
  Company Number: GB-ABBOTT-11P-167-0722288-00

PATIENT
  Sex: Female
  Weight: 3.6 kg

DRUGS (2)
  1. HUMIRA [Suspect]
     Indication: FOETAL EXPOSURE DURING PREGNANCY
  2. HUMIRA [Suspect]
     Indication: EXPOSURE VIA SEMEN
     Route: 050

REACTIONS (4)
  - FOETAL EXPOSURE DURING PREGNANCY [None]
  - NORMAL NEWBORN [None]
  - BREECH PRESENTATION [None]
  - PATERNAL DRUGS AFFECTING FOETUS [None]
